FAERS Safety Report 15328910 (Version 1)
Quarter: 2018Q3

REPORT INFORMATION
  Report Type: Spontaneous
  Country: US (occurrence: US)
  Receive Date: 20180823
  Receipt Date: 20180823
  Transmission Date: 20181010
  Serious: Yes (Hospitalization)
  Sender: FDA-Public Use
  Company Number: None

PATIENT
  Age: 30 Year
  Sex: Female
  Weight: 113.1 kg

DRUGS (1)
  1. ZEPATIER [Suspect]
     Active Substance: ELBASVIR\GRAZOPREVIR
     Indication: HEPATITIS C
     Dosage: ?          OTHER STRENGTH:50?100;?
     Route: 048
     Dates: start: 20170324, end: 20170710

REACTIONS (3)
  - Suicidal ideation [None]
  - Drug abuse [None]
  - Drug withdrawal syndrome [None]

NARRATIVE: CASE EVENT DATE: 20170610
